FAERS Safety Report 4372135-3 (Version None)
Quarter: 2004Q2

REPORT INFORMATION
  Report Type: 
  Country: None (occurrence: None)
  Receive Date: 20040603
  Receipt Date: 20040603
  Transmission Date: 20050107
  Serious: Yes (Life-Threatening)
  Sender: FDA-Public Use
  Company Number: None

PATIENT
  Sex: Male
  Weight: 94.8018 kg

DRUGS (7)
  1. ADENOSINE [Suspect]
     Indication: CARDIAC STRESS TEST
     Dosage: INTRAVENOUS
     Route: 042
     Dates: start: 20040319, end: 20040319
  2. CLONIDINE HCL [Concomitant]
  3. ALBUTEROL/IPRATROPIUM [Concomitant]
  4. MONTELUKAST [Concomitant]
  5. FLUNISOLIDE INH [Concomitant]
  6. METFORMIN [Concomitant]
  7. OMEPRAZOLE [Concomitant]

REACTIONS (5)
  - CARDIO-RESPIRATORY ARREST [None]
  - CATHETERISATION CARDIAC ABNORMAL [None]
  - DYSPNOEA [None]
  - OXYGEN SATURATION DECREASED [None]
  - VENTRICULAR TACHYCARDIA [None]
